FAERS Safety Report 14302671 (Version 1)
Quarter: 2017Q4

REPORT INFORMATION
  Report Type: Report from Study
  Country: DE (occurrence: DE)
  Receive Date: 20171219
  Receipt Date: 20171219
  Transmission Date: 20180321
  Serious: Yes (Other)
  Sender: FDA-Public Use
  Company Number: DE-BAXTER-2017BAX042879

PATIENT
  Age: 39 Year
  Sex: Male

DRUGS (10)
  1. ANTI-THYMOCYTE GLOBULIN (RABBIT) NOS [Suspect]
     Active Substance: LAPINE T-LYMPHOCYTE IMMUNE GLOBULIN
     Indication: BONE MARROW CONDITIONING REGIMEN
     Route: 065
  2. ACICLOVIR [Concomitant]
     Active Substance: ACYCLOVIR
     Indication: ANTIVIRAL PROPHYLAXIS
     Dosage: FROM DAY+1 UNTIL RECOVERY OF NEUTROPHILS
     Route: 065
  3. FLUCONAZOLE. [Concomitant]
     Active Substance: FLUCONAZOLE
     Indication: ANTIFUNGAL PROPHYLAXIS
     Dosage: UNTIL DAY +80
     Route: 065
  4. CLOFARABINE. [Suspect]
     Active Substance: CLOFARABINE
     Indication: CYTOREDUCTIVE SURGERY
     Dosage: 1 HOUR INFUSION
     Route: 042
  5. METRONIDAZOLE. [Concomitant]
     Active Substance: METRONIDAZOLE
     Indication: ANTIBIOTIC PROPHYLAXIS
     Dosage: WITH THE BEGINNING OF RIC UNTIL DAY +35
     Route: 065
  6. LEVOFLOXACIN. [Concomitant]
     Active Substance: LEVOFLOXACIN
     Indication: ANTIBIOTIC PROPHYLAXIS
     Dosage: WITH THE BEGINNING OF RIC UNTIL DAY +35
     Route: 065
  7. MYCOPHENOLATE MOFETIL. [Concomitant]
     Active Substance: MYCOPHENOLATE MOFETIL
     Indication: PROPHYLAXIS AGAINST GRAFT VERSUS HOST DISEASE
     Dosage: STARTING AT THE DAY OF  TRANSPLANTATION, STOPPED AT DAY +50
     Route: 065
  8. ENDOXAN LYOPHILISAT [Suspect]
     Active Substance: CYCLOPHOSPHAMIDE
     Indication: BONE MARROW CONDITIONING REGIMEN
     Dosage: 2 CYCLES
     Route: 065
  9. ARA-C [Suspect]
     Active Substance: CYTARABINE
     Indication: CYTOREDUCTIVE SURGERY
     Dosage: 2 HOUR INFUSION
     Route: 042
  10. CYCLOSPORINE. [Concomitant]
     Active Substance: CYCLOSPORINE
     Indication: PROPHYLAXIS AGAINST GRAFT VERSUS HOST DISEASE
     Dosage: FROM  DAY -1 (TARGET TROUGH LEVEL: 120-150 NG/ML), TAPERED FROM DAYS +70 TO +90
     Route: 065

REACTIONS (5)
  - Nervous system disorder [Unknown]
  - Alopecia [Unknown]
  - Endocrine disorder [Unknown]
  - Pyrexia [Unknown]
  - Oedema [Unknown]
